FAERS Safety Report 17425369 (Version 1)
Quarter: 2020Q1

REPORT INFORMATION
  Report Type: Spontaneous
  Country: US (occurrence: US)
  Receive Date: 20200217
  Receipt Date: 20200217
  Transmission Date: 20200409
  Serious: Yes (Other)
  Sender: FDA-Public Use
  Company Number: US-ELI_LILLY_AND_COMPANY-US202002001994

PATIENT
  Age: 73 Year
  Sex: Male

DRUGS (3)
  1. HUMALOG [Suspect]
     Active Substance: INSULIN LISPRO
     Dosage: UNK, UNKNOWN
     Route: 058
  2. HUMALOG [Suspect]
     Active Substance: INSULIN LISPRO
     Indication: TYPE 2 DIABETES MELLITUS
     Dosage: UNK, UNKNOWN
     Route: 058
     Dates: start: 2012
  3. LANTUS [Concomitant]
     Active Substance: INSULIN GLARGINE
     Indication: TYPE 2 DIABETES MELLITUS
     Dosage: 19 U, DAILY (BEDTIME)

REACTIONS (6)
  - Visual impairment [Unknown]
  - Blood glucose decreased [Unknown]
  - Intraocular pressure increased [Not Recovered/Not Resolved]
  - Blood glucose increased [Unknown]
  - Glycosylated haemoglobin increased [Recovered/Resolved]
  - Product storage error [Unknown]
